FAERS Safety Report 18134672 (Version 1)
Quarter: 2020Q3

REPORT INFORMATION
  Report Type: Spontaneous
  Country: US (occurrence: US)
  Receive Date: 20200810
  Receipt Date: 20200810
  Transmission Date: 20201103
  Serious: No
  Sender: FDA-Public Use
  Company Number: None

PATIENT
  Age: 68 Year
  Sex: Male
  Weight: 88.4 kg

DRUGS (10)
  1. LORAZEPAM. [Concomitant]
     Active Substance: LORAZEPAM
     Dates: start: 20200807
  2. PROPOFOL. [Concomitant]
     Active Substance: PROPOFOL
     Dates: start: 20200807
  3. MORPHINE [Concomitant]
     Active Substance: MORPHINE
     Dates: start: 20200807
  4. REMDESIVIR. [Suspect]
     Active Substance: REMDESIVIR
     Indication: COVID-19
     Route: 042
     Dates: start: 20200806, end: 20200809
  5. PANCURONIUM [Concomitant]
     Active Substance: PANCURONIUM
     Dates: start: 20200808
  6. FENTANYL. [Concomitant]
     Active Substance: FENTANYL
     Dates: start: 20200807
  7. INSULIN [Concomitant]
     Active Substance: INSULIN NOS
     Dates: start: 20200808
  8. PANTOPRAZOLE [Concomitant]
     Active Substance: PANTOPRAZOLE
     Dates: start: 20200807
  9. DEXAMETHASONE. [Concomitant]
     Active Substance: DEXAMETHASONE
     Dates: start: 20200808
  10. CEFTRIAXONE. [Concomitant]
     Active Substance: CEFTRIAXONE
     Dates: start: 20200806, end: 20200807

REACTIONS (1)
  - Renal impairment [None]

NARRATIVE: CASE EVENT DATE: 20200810
